FAERS Safety Report 16979184 (Version 5)
Quarter: 2020Q4

REPORT INFORMATION
  Report Type: Spontaneous
  Country: US (occurrence: US)
  Receive Date: 20191031
  Receipt Date: 20201130
  Transmission Date: 20210113
  Serious: Yes (Other)
  Sender: FDA-Public Use
  Company Number: US-PFIZER INC-2019469464

PATIENT
  Age: 52 Year
  Sex: Female
  Weight: 88.45 kg

DRUGS (14)
  1. PREGABALIN. [Suspect]
     Active Substance: PREGABALIN
     Indication: FIBROMYALGIA
     Dosage: 150 MG, 3X/DAY
     Route: 048
     Dates: start: 201908, end: 201910
  2. CLONIDINE. [Concomitant]
     Active Substance: CLONIDINE
     Dosage: 1 DF, AS NEEDED ( EVERY 6 HRS)
  3. FLEXERIL [CEFIXIME] [Concomitant]
     Active Substance: CEFIXIME
     Dosage: UNK, 3X/DAY
  4. TOPIRAMATE. [Concomitant]
     Active Substance: TOPIRAMATE
     Dosage: 200 MG, DAILY
  5. HYDROXYZINE [Concomitant]
     Active Substance: HYDROXYZINE HYDROCHLORIDE
     Dosage: 25 MG, UNK
  6. PREGABALIN. [Suspect]
     Active Substance: PREGABALIN
     Dosage: 150 MG, 3X/DAY
     Route: 048
     Dates: start: 201908, end: 201910
  7. HYDROCODONE [Concomitant]
     Active Substance: HYDROCODONE
     Dosage: 10 MG, AS NEEDED (1 PILL 10 MG 3 X DAILY AS NEEDED)
  8. VOLTAREN [Concomitant]
     Active Substance: DICLOFENAC SODIUM
     Indication: PAIN
     Dosage: UNK, AS NEEDED
  9. LIDOCAINE. [Concomitant]
     Active Substance: LIDOCAINE
     Indication: PAIN
     Dosage: UNK, AS NEEDED
  10. TEGRETOL [Concomitant]
     Active Substance: CARBAMAZEPINE
     Indication: NEURALGIA
     Dosage: 200 MG, 2X/DAY
     Dates: start: 201408
  11. PREGABALIN. [Suspect]
     Active Substance: PREGABALIN
     Dosage: 150 MG, 2X/DAY (150 MG. ONE CAPSULE TWICE DAILY BY MOUTH)
     Route: 048
  12. COREG [Concomitant]
     Active Substance: CARVEDILOL
     Dosage: UNK, 2X/DAY (6.25 2 X DAILY)
  13. PLAQUENIL [Concomitant]
     Active Substance: HYDROXYCHLOROQUINE SULFATE
     Dosage: UNK, DAILY (1 1/2 PILL DAILY )
  14. ROBAXIN [Concomitant]
     Active Substance: METHOCARBAMOL
     Dosage: 750 MG, 3X/DAY
     Dates: start: 201912

REACTIONS (18)
  - Condition aggravated [Unknown]
  - Swelling face [Recovered/Resolved]
  - Swollen tongue [Recovered/Resolved]
  - Weight increased [Unknown]
  - Eye swelling [Recovered/Resolved]
  - Burning sensation [Recovered/Resolved with Sequelae]
  - Pain [Recovered/Resolved with Sequelae]
  - Bradykinesia [Unknown]
  - Sjogren^s syndrome [Unknown]
  - Anaphylactic reaction [Recovered/Resolved with Sequelae]
  - Facial pain [Recovered/Resolved]
  - Hypoaesthesia [Recovered/Resolved with Sequelae]
  - Memory impairment [Recovering/Resolving]
  - Meniscus injury [Recovered/Resolved with Sequelae]
  - Erythema [Recovered/Resolved with Sequelae]
  - Rash [Recovered/Resolved with Sequelae]
  - Peripheral swelling [Unknown]
  - Pruritus [Recovered/Resolved with Sequelae]

NARRATIVE: CASE EVENT DATE: 2019
